FAERS Safety Report 18441131 (Version 1)
Quarter: 2020Q4

REPORT INFORMATION
  Report Type: Report from Study
  Country: US (occurrence: US)
  Receive Date: 20201029
  Receipt Date: 20201029
  Transmission Date: 20210114
  Serious: Yes (Life-Threatening)
  Sender: FDA-Public Use
  Company Number: US-TAKEDA-US202034588

PATIENT
  Age: 41 Year
  Sex: Female

DRUGS (3)
  1. CINRYZE [Suspect]
     Active Substance: HUMAN C1-ESTERASE INHIBITOR
     Indication: PRODUCT USED FOR UNKNOWN INDICATION
     Dosage: 1000 INTERNATIONAL UNIT, OTHER
     Route: 042
     Dates: start: 202010
  2. CINRYZE [Suspect]
     Active Substance: HUMAN C1-ESTERASE INHIBITOR
     Indication: PRODUCT USED FOR UNKNOWN INDICATION
     Dosage: 1000 INTERNATIONAL UNIT, OTHER
     Route: 042
     Dates: start: 202010
  3. CINRYZE [Suspect]
     Active Substance: HUMAN C1-ESTERASE INHIBITOR
     Indication: PRODUCT USED FOR UNKNOWN INDICATION
     Dosage: 1000 INTERNATIONAL UNIT, OTHER
     Route: 042
     Dates: start: 202010

REACTIONS (2)
  - Condition aggravated [Unknown]
  - Chest pain [Unknown]

NARRATIVE: CASE EVENT DATE: 20201019
